FAERS Safety Report 23889338 (Version 1)
Quarter: 2024Q2

REPORT INFORMATION
  Report Type: Spontaneous
  Country: US (occurrence: None)
  Receive Date: 20240523
  Receipt Date: 20240523
  Transmission Date: 20240716
  Serious: Yes (Other)
  Sender: FDA-Public Use
  Company Number: None

PATIENT
  Age: 68 Year
  Sex: Male
  Weight: 82.35 kg

DRUGS (5)
  1. NIFEDIPINE [Suspect]
     Active Substance: NIFEDIPINE
     Indication: Hypertension
     Dosage: 60 TABLETS TWICE A DAY ORAL
     Route: 048
     Dates: start: 20240520, end: 20240521
  2. CARVEDILOL [Concomitant]
     Active Substance: CARVEDILOL
  3. NIFEDIPINE [Concomitant]
     Active Substance: NIFEDIPINE
  4. OLMOSARTIN [Concomitant]
  5. EPLERENONE [Concomitant]
     Active Substance: EPLERENONE

REACTIONS (2)
  - Feeling abnormal [None]
  - Hallucination [None]

NARRATIVE: CASE EVENT DATE: 20240520
